FAERS Safety Report 25624736 (Version 3)
Quarter: 2025Q3

REPORT INFORMATION
  Report Type: Report from Study
  Country: US (occurrence: US)
  Receive Date: 20250730
  Receipt Date: 20250905
  Transmission Date: 20251020
  Serious: Yes (Hospitalization)
  Sender: BEIGENE
  Company Number: US-BEIGENE-BGN-2025-012451

PATIENT
  Age: 83 Year

DRUGS (2)
  1. BRUKINSA [Suspect]
     Active Substance: ZANUBRUTINIB
     Indication: Product used for unknown indication
     Dosage: 160 MILLIGRAM, QD
  2. BRUKINSA [Suspect]
     Active Substance: ZANUBRUTINIB
     Dosage: 160 MILLIGRAM, BID

REACTIONS (13)
  - Deep vein thrombosis [Unknown]
  - Contusion [Recovering/Resolving]
  - Epistaxis [Recovered/Resolved]
  - Bone pain [Unknown]
  - Arthralgia [Unknown]
  - Peripheral swelling [Unknown]
  - Mobility decreased [Unknown]
  - Haemoglobin abnormal [Recovering/Resolving]
  - Pruritus [Unknown]
  - Osteoarthritis [Unknown]
  - Insomnia [Unknown]
  - Gait disturbance [Unknown]
  - Skin weeping [Unknown]
